FAERS Safety Report 19042483 (Version 1)
Quarter: 2021Q1

REPORT INFORMATION
  Report Type: Spontaneous
  Country: AU (occurrence: AU)
  Receive Date: 20210323
  Receipt Date: 20210323
  Transmission Date: 20210420
  Serious: Yes (Life-Threatening, Other)
  Sender: FDA-Public Use
  Company Number: AU-PFIZER INC-2021294231

PATIENT
  Age: 69 Year
  Sex: Male
  Weight: 74 kg

DRUGS (7)
  1. AMINOPHYLLINE. [Concomitant]
     Active Substance: AMINOPHYLLINE
     Dosage: UNK
  2. PREDNISOLONE. [Concomitant]
     Active Substance: PREDNISOLONE
     Dosage: UNK
  3. PROPOFOL ACTAVIS [Concomitant]
     Indication: SEDATION
     Dosage: 30 MG
  4. LIGNOCAINE [LIDOCAINE] [Concomitant]
     Active Substance: LIDOCAINE
     Dosage: 3 ML (3 ML 4% )
  5. NALOXONE HCL [Suspect]
     Active Substance: NALOXONE HYDROCHLORIDE
     Dosage: 0.15 MG
  6. DIGOXIN. [Concomitant]
     Active Substance: DIGOXIN
     Dosage: UNK
  7. FENTANYL. [Concomitant]
     Active Substance: FENTANYL
     Indication: SEDATION
     Dosage: 50 UG

REACTIONS (3)
  - Bronchospasm [Unknown]
  - Pulmonary oedema [Unknown]
  - Respiratory failure [Unknown]
